FAERS Safety Report 4734182-9 (Version None)
Quarter: 2005Q3

REPORT INFORMATION
  Report Type: 
  Country: None (occurrence: None)
  Receive Date: 20050803
  Receipt Date: 20050803
  Transmission Date: 20060218
  Serious: Yes (Disabling)
  Sender: FDA-Public Use
  Company Number: None

PATIENT
  Age: 55 Year
  Sex: Female
  Weight: 68.0396 kg

DRUGS (1)
  1. TEQUIN [Suspect]
     Indication: RESPIRATORY DISORDER
     Dosage: 400 MG PO
     Route: 048
     Dates: start: 20030709, end: 20031209

REACTIONS (9)
  - ARTHRALGIA [None]
  - DISTURBANCE IN ATTENTION [None]
  - HEADACHE [None]
  - HYPERTENSION [None]
  - HYPOAESTHESIA [None]
  - MYALGIA [None]
  - NECK INJURY [None]
  - PAIN IN EXTREMITY [None]
  - PARAESTHESIA [None]
